FAERS Safety Report 5398487-3 (Version None)
Quarter: 2007Q3

REPORT INFORMATION
  Report Type: 
  Country: None (occurrence: None)
  Receive Date: 20070726
  Receipt Date: 20070316
  Transmission Date: 20080115
  Serious: No
  Sender: FDA-Public Use
  Company Number: US-AMGEN-KDL212269

PATIENT
  Sex: Female

DRUGS (21)
  1. PROCRIT [Suspect]
     Indication: RENAL FAILURE CHRONIC
     Route: 058
     Dates: start: 20070209
  2. ALBUTEROL [Concomitant]
  3. ASPIRIN [Concomitant]
     Route: 048
  4. BETAPACE [Concomitant]
     Route: 048
  5. CARDURA [Concomitant]
     Route: 048
  6. DILTIAZEM [Concomitant]
     Route: 048
  7. CLONIDINE [Concomitant]
     Route: 048
  8. DOXEPIN HCL [Concomitant]
     Route: 048
  9. DILANTIN KAPSEAL [Concomitant]
     Route: 048
  10. VICODIN [Concomitant]
     Route: 048
  11. INSULIN [Concomitant]
     Route: 058
  12. LASIX [Concomitant]
     Route: 048
  13. LOVASTATIN [Concomitant]
     Route: 048
  14. GABAPENTIN [Concomitant]
     Route: 048
  15. PREVACID [Concomitant]
     Route: 048
  16. NITROGLYCERIN [Concomitant]
     Route: 060
  17. PERCOCET [Concomitant]
     Route: 048
  18. PRENATAL VITAMINS [Concomitant]
  19. QVAR 40 [Concomitant]
     Route: 055
  20. TEMAZEPAM [Concomitant]
     Route: 048
  21. ZOLOFT [Concomitant]
     Route: 048

REACTIONS (6)
  - ANOREXIA [None]
  - BLOOD PRESSURE DECREASED [None]
  - LETHARGY [None]
  - MOBILITY DECREASED [None]
  - SENSATION OF HEAVINESS [None]
  - TREMOR [None]
